FAERS Safety Report 10394214 (Version 1)
Quarter: 2014Q3

REPORT INFORMATION
  Report Type: Spontaneous
  Country: US (occurrence: US)
  Receive Date: 20140819
  Receipt Date: 20140819
  Transmission Date: 20150326
  Serious: Yes (Hospitalization, Other)
  Sender: FDA-Public Use
  Company Number: US-009507513-1408USA010748

PATIENT
  Sex: Female
  Weight: 84.13 kg

DRUGS (1)
  1. NUVARING [Suspect]
     Active Substance: ETHINYL ESTRADIOL\ETONOGESTREL
     Indication: CONTRACEPTION
     Dosage: UNK
     Dates: end: 20130916

REACTIONS (12)
  - Pulmonary embolism [Unknown]
  - Stress fracture [Unknown]
  - Migraine [Unknown]
  - Irritable bowel syndrome [Unknown]
  - Fibromyalgia [Unknown]
  - Post-traumatic stress disorder [Unknown]
  - Deep vein thrombosis [Unknown]
  - Depression [Unknown]
  - Cystitis interstitial [Unknown]
  - Ovarian cystectomy [Unknown]
  - Cholecystectomy [Unknown]
  - Gastrooesophageal reflux disease [Unknown]

NARRATIVE: CASE EVENT DATE: 201308
